FAERS Safety Report 10788033 (Version 1)
Quarter: 2015Q1

REPORT INFORMATION
  Report Type: Spontaneous
  Country: GB (occurrence: None)
  Receive Date: 20150210
  Receipt Date: 20150210
  Transmission Date: 20150721
  Serious: Yes (Disabling)
  Sender: FDA-Public Use
  Company Number: CL-611-2015

PATIENT
  Age: 67 Year
  Sex: Female
  Weight: 71 kg

DRUGS (8)
  1. CETIRIZINE [Concomitant]
     Active Substance: CETIRIZINE HYDROCHLORIDE
  2. INDAPAMIDE. [Concomitant]
     Active Substance: INDAPAMIDE
  3. METFORMIN [Concomitant]
     Active Substance: METFORMIN HYDROCHLORIDE
  4. CANDESARTAN [Concomitant]
     Active Substance: CANDESARTAN
  5. OMEPRAZOLE. [Concomitant]
     Active Substance: OMEPRAZOLE
  6. METRONIDAZOLE. [Suspect]
     Active Substance: METRONIDAZOLE
     Route: 048
     Dates: start: 20141222, end: 20141226
  7. BEZAFIBRATE [Concomitant]
     Active Substance: BEZAFIBRATE
  8. TOLTERODINE [Concomitant]
     Active Substance: TOLTERODINE

REACTIONS (3)
  - Hallucinations, mixed [None]
  - Neurotoxicity [None]
  - Dysarthria [None]

NARRATIVE: CASE EVENT DATE: 20141225
